FAERS Safety Report 16017429 (Version 1)
Quarter: 2019Q1

REPORT INFORMATION
  Report Type: Spontaneous
  Country: US (occurrence: US)
  Receive Date: 20190228
  Receipt Date: 20190228
  Transmission Date: 20190418
  Serious: No
  Sender: FDA-Public Use
  Company Number: US-FRESENIUS MEDICAL CARE RENAL THERAPIES GROUP-FMC-1902-000218

PATIENT
  Sex: Female

DRUGS (1)
  1. PHOSLO [Suspect]
     Active Substance: CALCIUM ACETATE
     Indication: END STAGE RENAL DISEASE
     Dosage: 667MG, 6X DAILY
     Route: 048
     Dates: start: 20181228

REACTIONS (4)
  - Dysphagia [Unknown]
  - Treatment noncompliance [Unknown]
  - Product physical issue [Unknown]
  - Intentional product use issue [Unknown]
